FAERS Safety Report 15773820 (Version 2)
Quarter: 2019Q1

REPORT INFORMATION
  Report Type: Report from Study
  Country: None (occurrence: US)
  Receive Date: 20181229
  Receipt Date: 20190210
  Transmission Date: 20190417
  Serious: Yes (Hospitalization)
  Sender: FDA-Public Use
  Company Number: US-ABBVIE-18K-163-2607494-00

PATIENT
  Age: 69 Year
  Sex: Female

DRUGS (2)
  1. HUMIRA [Suspect]
     Active Substance: ADALIMUMAB
     Route: 058
  2. HUMIRA [Suspect]
     Active Substance: ADALIMUMAB
     Indication: PRODUCT USED FOR UNKNOWN INDICATION
     Route: 058
     Dates: start: 2011, end: 2016

REACTIONS (6)
  - Fall [Recovered/Resolved]
  - Gait inability [Recovered/Resolved]
  - Contusion [Unknown]
  - Mobility decreased [Recovered/Resolved]
  - Gait disturbance [Unknown]
  - Head injury [Unknown]

NARRATIVE: CASE EVENT DATE: 2018
